FAERS Safety Report 7598058-4 (Version None)
Quarter: 2011Q3

REPORT INFORMATION
  Report Type: 
  Country: None (occurrence: None)
  Receive Date: 20110708
  Receipt Date: 20110623
  Transmission Date: 20111222
  Serious: Yes (Hospitalization)
  Sender: FDA-Public Use
  Company Number: DE-UCBSA-036053

PATIENT
  Sex: Male

DRUGS (2)
  1. VIMPAT [Suspect]
     Dosage: 8 TABLETS;TOTAL AMOUNT 1600 MG; FOUR TIMES DAILY DOSE
     Route: 048
     Dates: start: 20110601
  2. KEPPRA [Suspect]
     Dosage: 12 TABLETS, 12000 MG, FOUR TIMES DAILY DOSE
     Route: 048
     Dates: start: 20110601

REACTIONS (1)
  - ACCIDENTAL OVERDOSE [None]
